FAERS Safety Report 4339983-7 (Version None)
Quarter: 2004Q2

REPORT INFORMATION
  Report Type: 
  Country: None (occurrence: None)
  Receive Date: 20040416
  Receipt Date: 20040318
  Transmission Date: 20050107
  Serious: Yes (Other)
  Sender: FDA-Public Use
  Company Number: PHBS2004JP03859

PATIENT
  Age: 28 Year
  Sex: Female

DRUGS (3)
  1. LAMISIL [Suspect]
     Indication: NAIL TINEA
     Route: 048
  2. TAMIFLU [Concomitant]
     Route: 048
     Dates: start: 20040225, end: 20040301
  3. ACETAMINOPHEN [Concomitant]
     Route: 048
     Dates: start: 20040225, end: 20040301

REACTIONS (4)
  - DEPRESSED LEVEL OF CONSCIOUSNESS [None]
  - INFLUENZA [None]
  - PYREXIA [None]
  - WHITE BLOOD CELL COUNT DECREASED [None]
